FAERS Safety Report 23588862 (Version 3)
Quarter: 2024Q1

REPORT INFORMATION
  Report Type: Spontaneous
  Country: US (occurrence: None)
  Receive Date: 20240303
  Receipt Date: 20240321
  Transmission Date: 20240410
  Serious: No
  Sender: FDA-Public Use
  Company Number: 2024A035247

PATIENT
  Age: 89 Year
  Sex: Female

DRUGS (2)
  1. BUDESONIDE\FORMOTEROL [Suspect]
     Active Substance: BUDESONIDE\FORMOTEROL
     Dosage: UNKNOWN UNKNOWN
     Route: 055
  2. SYMBICORT [Suspect]
     Active Substance: BUDESONIDE\FORMOTEROL FUMARATE DIHYDRATE
     Indication: Chronic obstructive pulmonary disease
     Dosage: 1 PUFF 2X UNKNOWN
     Route: 055
     Dates: start: 2023

REACTIONS (11)
  - Visual impairment [Unknown]
  - Hypoacusis [Unknown]
  - Glossodynia [Unknown]
  - Throat irritation [Unknown]
  - Dysphonia [Unknown]
  - Wrong technique in device usage process [Unknown]
  - Drug dose omission by device [Unknown]
  - Insurance issue [Unknown]
  - Incorrect dose administered [Unknown]
  - Device use issue [Unknown]
  - Device defective [Unknown]
